FAERS Safety Report 9693374 (Version 2)
Quarter: 2014Q2

REPORT INFORMATION
  Report Type: Spontaneous
  Country: AU (occurrence: AU)
  Receive Date: 20131118
  Receipt Date: 20140410
  Transmission Date: 20141212
  Serious: Yes (Congenital Anomaly)
  Sender: FDA-Public Use
  Company Number: AU-ABBVIE-13P-008-1157579-00

PATIENT
  Sex: Female

DRUGS (4)
  1. SODIUM VALPROATE [Suspect]
     Indication: MATERNAL EXPOSURE TIMING UNSPECIFIED
     Route: 064
  2. AROPAX [Suspect]
     Indication: MATERNAL EXPOSURE TIMING UNSPECIFIED
     Route: 064
  3. CARBAMAZEPINE [Suspect]
     Indication: MATERNAL EXPOSURE TIMING UNSPECIFIED
     Route: 064
  4. ZOLOFT [Suspect]
     Indication: MATERNAL EXPOSURE TIMING UNSPECIFIED
     Route: 064

REACTIONS (7)
  - Neonatal disorder [Unknown]
  - Multiple congenital abnormalities [Unknown]
  - Dysmorphism [Unknown]
  - Hypotelorism of orbit [Unknown]
  - Prominent epicanthal folds [Unknown]
  - Congenital anomaly [Unknown]
  - Foetal exposure during pregnancy [Unknown]
